FAERS Safety Report 9867816 (Version 2)
Quarter: 2014Q1

REPORT INFORMATION
  Report Type: Spontaneous
  Country: PL (occurrence: PL)
  Receive Date: 20140204
  Receipt Date: 20140312
  Transmission Date: 20141002
  Serious: Yes (Other)
  Sender: FDA-Public Use
  Company Number: PHHY2014PL009718

PATIENT
  Age: 57 Year
  Sex: Male
  Weight: 68 kg

DRUGS (4)
  1. OXALIPLATIN [Suspect]
     Dosage: 85 MG/M2, QD
     Route: 042
     Dates: start: 20130826, end: 20130925
  2. LEUCOVORIN CALCIUM [Suspect]
     Indication: RECTAL CANCER
     Dosage: 200 MG/M2, QD
     Route: 042
     Dates: start: 20130826, end: 20130925
  3. 5-FLUOROURACIL [Suspect]
     Indication: RECTAL CANCER
     Dosage: 720 UKN
     Route: 042
     Dates: start: 20130826, end: 20130925
  4. 5-FLUOROURACIL [Suspect]
     Dosage: 1080 UKN
     Dates: start: 20130826, end: 20130925

REACTIONS (2)
  - Neutropenia [Not Recovered/Not Resolved]
  - Thrombocytopenia [Not Recovered/Not Resolved]
